FAERS Safety Report 19790063 (Version 1)
Quarter: 2021Q3

REPORT INFORMATION
  Report Type: Report from Study
  Country: None (occurrence: US)
  Receive Date: 20210905
  Receipt Date: 20210905
  Transmission Date: 20211014
  Serious: Yes (Other)
  Sender: FDA-Public Use
  Company Number: US-ABBVIE-21K-163-4062352-00

PATIENT
  Age: 64 Year
  Sex: Female

DRUGS (2)
  1. PFIZER?BIONTECH COVID?19 VACCINE [Concomitant]
     Active Substance: TOZINAMERAN
     Indication: COVID-19 IMMUNISATION
     Route: 030
     Dates: start: 2021, end: 2021
  2. HUMIRA [Suspect]
     Active Substance: ADALIMUMAB
     Indication: RHEUMATOID ARTHRITIS
     Route: 058

REACTIONS (6)
  - Nervous system disorder [Unknown]
  - Swelling [Unknown]
  - Rotator cuff syndrome [Unknown]
  - Lymphadenopathy [Unknown]
  - Adverse drug reaction [Unknown]
  - Limb operation [Unknown]

NARRATIVE: CASE EVENT DATE: 20210512
